FAERS Safety Report 19266513 (Version 1)
Quarter: 2021Q2

REPORT INFORMATION
  Report Type: Spontaneous
  Country: CN (occurrence: CN)
  Receive Date: 20210517
  Receipt Date: 20210517
  Transmission Date: 20210717
  Serious: Yes (Other)
  Sender: FDA-Public Use
  Company Number: CN-PFIZER INC-2021504211

PATIENT
  Age: 10 Year
  Sex: Male
  Weight: 40 kg

DRUGS (10)
  1. PEGASPARGASE [Concomitant]
     Active Substance: PEGASPARGASE
     Indication: ACUTE LYMPHOCYTIC LEUKAEMIA
     Dosage: 2600 IU, 1X/DAY
     Route: 058
     Dates: start: 20210216, end: 20210216
  2. MERCAPTOPURINE. [Suspect]
     Active Substance: MERCAPTOPURINE
     Indication: ACUTE LYMPHOCYTIC LEUKAEMIA
     Dosage: 50 MG, 1X/DAY
     Route: 048
     Dates: start: 20210216, end: 20210222
  3. CYTOSAR [Suspect]
     Active Substance: CYTARABINE
     Indication: ACUTE LYMPHOCYTIC LEUKAEMIA
     Dosage: 0.065 G, 2X/DAY
     Route: 058
     Dates: start: 20210216, end: 20210223
  4. VINDESINE [Suspect]
     Active Substance: VINDESINE
     Indication: ACUTE LYMPHOCYTIC LEUKAEMIA
     Dosage: 3 MG/M2 (D1, D8)
     Dates: start: 20210216
  5. METHOTREXATE SODIUM. [Suspect]
     Active Substance: METHOTREXATE SODIUM
     Indication: PROPHYLAXIS
     Dosage: 12.5 MG
     Route: 037
     Dates: start: 20210216
  6. DEXAMETHASONE. [Suspect]
     Active Substance: DEXAMETHASONE
     Indication: PROPHYLAXIS
     Dosage: 5 MG
     Route: 037
     Dates: start: 20210216
  7. CYTOSAR [Suspect]
     Active Substance: CYTARABINE
     Indication: PROPHYLAXIS
     Dosage: 35 MG
     Route: 037
     Dates: start: 20210216
  8. ENDOXAN [CYCLOPHOSPHAMIDE] [Suspect]
     Active Substance: CYCLOPHOSPHAMIDE
     Indication: ACUTE LYMPHOCYTIC LEUKAEMIA
     Dosage: 1.3 G, 1X/DAY
     Route: 041
     Dates: start: 20210216, end: 20210216
  9. AMOXICILLIN + CLAVULANIC ACID [Concomitant]
     Active Substance: AMOXICILLIN\CLAVULANIC ACID
     Indication: INFECTION
     Dosage: UNK
     Dates: start: 20210215
  10. VORICONAZOLE. [Concomitant]
     Active Substance: VORICONAZOLE
     Indication: FUNGAL INFECTION
     Dosage: UNK
     Dates: start: 20210215

REACTIONS (1)
  - Myelosuppression [Recovering/Resolving]

NARRATIVE: CASE EVENT DATE: 20210302
